FAERS Safety Report 5446471-3 (Version None)
Quarter: 2007Q3

REPORT INFORMATION
  Report Type: 
  Country: None (occurrence: None)
  Receive Date: 20070907
  Receipt Date: 20070829
  Transmission Date: 20080115
  Serious: Yes (Hospitalization)
  Sender: FDA-Public Use
  Company Number: FR-ROCHE-514260

PATIENT
  Age: 12 Year
  Sex: Female

DRUGS (1)
  1. ROCEPHIN [Suspect]
     Dosage: DOSAGE FORM: INJECTABLE SOLUTION. STRENGTH: 2 G/40 ML.
     Route: 042
     Dates: start: 20070708, end: 20070719

REACTIONS (2)
  - NEPHROLITHIASIS [None]
  - RENAL COLIC [None]
